FAERS Safety Report 15715357 (Version 1)
Quarter: 2018Q4

REPORT INFORMATION
  Report Type: Spontaneous
  Country: US (occurrence: US)
  Receive Date: 20181212
  Receipt Date: 20181212
  Transmission Date: 20190205
  Serious: No
  Sender: FDA-Public Use
  Company Number: None

PATIENT
  Sex: Male

DRUGS (1)
  1. RANITIDINE 15 MG/1 ML [Suspect]
     Active Substance: RANITIDINE

REACTIONS (2)
  - Vomiting [None]
  - Drug ineffective [None]
